FAERS Safety Report 19895485 (Version 2)
Quarter: 2021Q3

REPORT INFORMATION
  Report Type: Report from Study
  Country: ES (occurrence: ES)
  Receive Date: 20210929
  Receipt Date: 20210929
  Transmission Date: 20211014
  Serious: Yes (Death, Life-Threatening, Hospitalization, Disabling)
  Sender: FDA-Public Use
  Company Number: ES-CELGENEUS-ESP-20210906997

PATIENT
  Age: 86 Year
  Sex: Male

DRUGS (14)
  1. AZACITIDINE. [Suspect]
     Active Substance: AZACITIDINE
     Indication: ACUTE MYELOID LEUKAEMIA
     Dosage: 75 MILLIGRAM/SQ. METER
     Route: 058
     Dates: start: 20191112
  2. OMEPRAZOLE. [Concomitant]
     Active Substance: OMEPRAZOLE
     Indication: GASTROINTESTINAL DISORDER THERAPY
     Dosage: 20 MILLIGRAM
     Route: 048
  3. MACROGOL 3350 [Concomitant]
     Active Substance: POLYETHYLENE GLYCOL 3350
     Indication: CONSTIPATION
     Route: 065
  4. ISOPLASMAL [Concomitant]
     Indication: PROPHYLAXIS
     Route: 065
  5. TRAZODONA [Concomitant]
     Active Substance: TRAZODONE HYDROCHLORIDE
     Indication: PROPHYLAXIS
     Dosage: 100 MILLIGRAM
     Route: 048
  6. POTASSIUM CHLORIDE. [Concomitant]
     Active Substance: POTASSIUM CHLORIDE
     Indication: PROPHYLAXIS
     Route: 065
  7. AZACITIDINE. [Suspect]
     Active Substance: AZACITIDINE
     Dosage: 135 MILLIGRAM/SQ. METER
     Route: 058
     Dates: start: 20191112, end: 20191213
  8. TAMSULOSINA [Concomitant]
     Active Substance: TAMSULOSIN HYDROCHLORIDE
     Indication: BENIGN PROSTATIC HYPERPLASIA
     Dosage: .4 MILLIGRAM
     Route: 048
  9. DEXCLORFENIRAMINA [Concomitant]
     Active Substance: DEXCHLORPHENIRAMINE
     Indication: PREMEDICATION
     Dosage: .3333 MILLIGRAM
     Route: 048
     Dates: start: 20191114
  10. PANTOPRAZOLE [Concomitant]
     Active Substance: PANTOPRAZOLE
     Indication: PROPHYLAXIS
     Route: 065
  11. JNJ?74494550 [Suspect]
     Active Substance: CUSATUZUMAB
     Indication: ACUTE MYELOID LEUKAEMIA
     Dosage: 20 MILLIGRAM/KILOGRAM
     Route: 041
     Dates: start: 20191114
  12. DEXAMETHASONE. [Concomitant]
     Active Substance: DEXAMETHASONE
     Indication: PREMEDICATION
     Dosage: 1.3333 MILLIGRAM
     Route: 048
     Dates: start: 20191114
  13. MAGNESIUM [Concomitant]
     Active Substance: MAGNESIUM
     Indication: PROPHYLAXIS
     Route: 065
  14. SOLIFENACINA [Concomitant]
     Indication: BENIGN PROSTATIC HYPERPLASIA
     Dosage: 10 MILLIGRAM
     Route: 048

REACTIONS (3)
  - Pyrexia [Recovered/Resolved]
  - Acute kidney injury [Fatal]
  - Staphylococcal sepsis [Recovering/Resolving]

NARRATIVE: CASE EVENT DATE: 20191117
